FAERS Safety Report 23606654 (Version 1)
Quarter: 2024Q1

REPORT INFORMATION
  Report Type: Spontaneous
  Country: US (occurrence: None)
  Receive Date: 20240306
  Receipt Date: 20240306
  Transmission Date: 20240410
  Serious: Yes (unspecified)
  Sender: FDA-Public Use
  Company Number: None

PATIENT
  Age: 31 Year
  Sex: Female
  Weight: 62.6 kg

DRUGS (2)
  1. STELARA [Suspect]
     Active Substance: USTEKINUMAB
     Dates: start: 20240306, end: 20240306
  2. STELARA [Suspect]
     Active Substance: USTEKINUMAB
     Route: 042
     Dates: start: 20240306, end: 20240306

REACTIONS (3)
  - Hyperhidrosis [None]
  - Abdominal pain [None]
  - Defaecation urgency [None]

NARRATIVE: CASE EVENT DATE: 20240306
